FAERS Safety Report 8114881-1 (Version None)
Quarter: 2012Q1

REPORT INFORMATION
  Report Type: 
  Country: None (occurrence: None)
  Receive Date: 20120206
  Receipt Date: 20120126
  Transmission Date: 20120608
  Serious: No
  Sender: FDA-Public Use
  Company Number: US-JNJFOC-20120112304

PATIENT
  Sex: Female

DRUGS (3)
  1. PERCOCET [Concomitant]
     Indication: PAIN
     Route: 065
  2. FENTANYL-100 [Suspect]
     Indication: PAIN
     Route: 062
  3. VICODIN [Concomitant]
     Indication: PAIN
     Route: 065

REACTIONS (1)
  - INAPPROPRIATE SCHEDULE OF DRUG ADMINISTRATION [None]
